FAERS Safety Report 4543601-2 (Version None)
Quarter: 2005Q1

REPORT INFORMATION
  Report Type: 
  Country: None (occurrence: None)
  Receive Date: 20050103
  Receipt Date: 20041125
  Transmission Date: 20050727
  Serious: Yes (Hospitalization, Other)
  Sender: FDA-Public Use
  Company Number: AU-GLAXOSMITHKLINE-B0358953A

PATIENT
  Age: 53 Year
  Sex: Female
  Weight: 60 kg

DRUGS (5)
  1. FLOLAN [Suspect]
     Indication: PULMONARY HYPERTENSION
     Dosage: 500MCG PER DAY
     Route: 042
     Dates: start: 20040823
  2. VIAGRA [Concomitant]
     Indication: PULMONARY HYPERTENSION
     Dosage: 25MG FOUR TIMES PER DAY
     Route: 048
     Dates: start: 20020927
  3. BOSENTAN [Concomitant]
     Indication: PULMONARY HYPERTENSION
     Dosage: 125MCG TWICE PER DAY
     Route: 048
     Dates: start: 20040318
  4. NEXIUM [Concomitant]
     Indication: GASTROOESOPHAGEAL REFLUX DISEASE
     Dosage: 40MG PER DAY
     Route: 048
  5. WARFARIN [Concomitant]
     Indication: PROPHYLAXIS
     Route: 048

REACTIONS (4)
  - CELLULITIS [None]
  - INFLAMMATION [None]
  - INFUSION SITE INFECTION [None]
  - PAIN [None]
